FAERS Safety Report 13642206 (Version 1)
Quarter: 2017Q2

REPORT INFORMATION
  Report Type: Report from Study
  Country: US (occurrence: US)
  Receive Date: 20170612
  Receipt Date: 20170612
  Transmission Date: 20170830
  Serious: Yes (Other)
  Sender: FDA-Public Use
  Company Number: US-JNJFOC-20160319376

PATIENT
  Age: 78 Year
  Sex: Male
  Weight: 100 kg

DRUGS (27)
  1. COLESTIPOL [Concomitant]
     Active Substance: COLESTIPOL
  2. DAPSONE. [Concomitant]
     Active Substance: DAPSONE
  3. LINUM USITATISSIMUM SEED OIL [Concomitant]
  4. FLOMAX [Concomitant]
     Active Substance: TAMSULOSIN HYDROCHLORIDE
  5. ZYDELIG [Concomitant]
     Active Substance: IDELALISIB
  6. IMBRUVICA [Suspect]
     Active Substance: IBRUTINIB
     Indication: CHRONIC LYMPHOCYTIC LEUKAEMIA RECURRENT
     Route: 048
     Dates: start: 201510, end: 201601
  7. NEXIUM [Concomitant]
     Active Substance: ESOMEPRAZOLE MAGNESIUM
  8. ZANTAC [Concomitant]
     Active Substance: RANITIDINE HYDROCHLORIDE
  9. ASPIRIN. [Concomitant]
     Active Substance: ASPIRIN
  10. VYTORIN [Concomitant]
     Active Substance: EZETIMIBE\SIMVASTATIN
  11. DIPROPHYLLINE [Concomitant]
     Active Substance: DYPHYLLINE
  12. PLANTAGO PSYLLIUM [Concomitant]
  13. DEFERASIROX [Concomitant]
     Active Substance: DEFERASIROX
  14. IMBRUVICA [Suspect]
     Active Substance: IBRUTINIB
     Indication: CHRONIC LYMPHOCYTIC LEUKAEMIA RECURRENT
     Route: 048
     Dates: start: 20151017
  15. IMBRUVICA [Suspect]
     Active Substance: IBRUTINIB
     Indication: CHRONIC LYMPHOCYTIC LEUKAEMIA RECURRENT
     Route: 048
     Dates: start: 20170531
  16. ALTACE [Concomitant]
     Active Substance: RAMIPRIL
     Dosage: Q AM
  17. NEURONTIN [Concomitant]
     Active Substance: GABAPENTIN
  18. COENZYME Q10 [Concomitant]
     Active Substance: UBIDECARENONE
  19. LEXAPRO [Concomitant]
     Active Substance: ESCITALOPRAM OXALATE
     Dosage: Q AM
  20. MIRALAX [Concomitant]
     Active Substance: POLYETHYLENE GLYCOL 3350
  21. FISH OIL [Concomitant]
     Active Substance: FISH OIL
  22. COUMADIN [Concomitant]
     Active Substance: WARFARIN SODIUM
  23. IMBRUVICA [Suspect]
     Active Substance: IBRUTINIB
     Indication: CHRONIC LYMPHOCYTIC LEUKAEMIA RECURRENT
     Route: 048
     Dates: start: 201602, end: 20160327
  24. LACTOBACILLUS ACIDOPHILUS [Concomitant]
     Active Substance: LACTOBACILLUS ACIDOPHILUS
  25. XANAX [Concomitant]
     Active Substance: ALPRAZOLAM
  26. METAMUCIL [Concomitant]
     Active Substance: PLANTAGO SEED
  27. ACIPHEX [Concomitant]
     Active Substance: RABEPRAZOLE SODIUM

REACTIONS (15)
  - Pain [Unknown]
  - Gastrointestinal motility disorder [Unknown]
  - Blood blister [Unknown]
  - Atrial fibrillation [Unknown]
  - Faecaloma [Recovering/Resolving]
  - Weight decreased [Unknown]
  - Mouth haemorrhage [Unknown]
  - Large intestinal stenosis [Unknown]
  - Musculoskeletal pain [Unknown]
  - Blood cholesterol increased [Unknown]
  - Insomnia [Unknown]
  - Abdominal discomfort [Recovering/Resolving]
  - Feeling abnormal [Unknown]
  - Haemoglobin abnormal [Unknown]
  - Drug dose omission [Not Recovered/Not Resolved]

NARRATIVE: CASE EVENT DATE: 201510
